FAERS Safety Report 7139122-3 (Version None)
Quarter: 2010Q4

REPORT INFORMATION
  Report Type: 
  Country: None (occurrence: None)
  Receive Date: 20101206
  Receipt Date: 20101105
  Transmission Date: 20110411
  Serious: Yes (Other)
  Sender: FDA-Public Use
  Company Number: PHHY2010MX75704

PATIENT
  Age: 93 Year
  Sex: Male

DRUGS (1)
  1. EXELON [Suspect]
     Indication: DEMENTIA ALZHEIMER'S TYPE
     Dosage: 1 PATCH (5CM2/4.6 MG) PER DAY
     Route: 062

REACTIONS (3)
  - DELIRIUM [None]
  - HYPERKINESIA [None]
  - INSOMNIA [None]
